FAERS Safety Report 11029498 (Version 1)
Quarter: 2015Q2

REPORT INFORMATION
  Report Type: Spontaneous
  Country: US (occurrence: None)
  Receive Date: 20150414
  Receipt Date: 20150414
  Transmission Date: 20150821
  Serious: Yes (Death)
  Sender: FDA-Public Use
  Company Number: None

PATIENT
  Age: 74 Year
  Sex: Female
  Weight: 90.72 kg

DRUGS (6)
  1. HEARING AID [Concomitant]
  2. PRESCRIPTION EAR DROPS [Concomitant]
  3. LEXAPRO [Concomitant]
     Active Substance: ESCITALOPRAM OXALATE
  4. CIPRO [Suspect]
     Active Substance: CIPROFLOXACIN HYDROCHLORIDE
     Indication: EAR INFECTION
     Dosage: 1 PILL TWICE DAILY TAKEN BY MOUTH
     Route: 048
     Dates: start: 20150310, end: 20150325
  5. XANAX [Concomitant]
     Active Substance: ALPRAZOLAM
  6. IBUPROFEN. [Concomitant]
     Active Substance: IBUPROFEN

REACTIONS (7)
  - Cardiac arrest [None]
  - Chest pain [None]
  - Musculoskeletal pain [None]
  - Neck pain [None]
  - Myocardial infarction [None]
  - Palpitations [None]
  - Pain in jaw [None]

NARRATIVE: CASE EVENT DATE: 20150325
